FAERS Safety Report 21081571 (Version 1)
Quarter: 2022Q3

REPORT INFORMATION
  Report Type: Report from Study
  Country: IR (occurrence: IR)
  Receive Date: 20220714
  Receipt Date: 20220714
  Transmission Date: 20221026
  Serious: Yes (Other)
  Sender: FDA-Public Use
  Company Number: IR-MYLANLABS-2022M1078499

PATIENT
  Age: 58 Year
  Sex: Male

DRUGS (2)
  1. FLUOROURACIL [Suspect]
     Active Substance: FLUOROURACIL
     Indication: Colon cancer
     Dosage: 425 MILLIGRAM/SQ. METER EVERY 4 WEEKS(INFUSION OVER 22 H DAILY FOR 5 DAYS)
     Route: 065
  2. LEUCOVORIN [Suspect]
     Active Substance: LEUCOVORIN
     Indication: Colon cancer
     Dosage: 20 MILLIGRAM/SQ. METER EVERY 4 WEEKS (BOLUS DAILY FOR 5 DAYS)
     Route: 065

REACTIONS (1)
  - Sinus tachycardia [Unknown]
